FAERS Safety Report 19945882 (Version 1)
Quarter: 2021Q4

REPORT INFORMATION
  Report Type: Spontaneous
  Country: IN (occurrence: IN)
  Receive Date: 20211012
  Receipt Date: 20211012
  Transmission Date: 20220303
  Serious: Yes (Hospitalization)
  Sender: FDA-Public Use
  Company Number: IN-VIRTUS PHARMACEUTICALS, LLC-2021VTS00050

PATIENT
  Age: 26 Year
  Sex: Female

DRUGS (3)
  1. DAPSONE [Suspect]
     Active Substance: DAPSONE
     Dosage: 100 MG, 1X/DAY
     Route: 065
  2. CLOFAZIMINE [Concomitant]
     Active Substance: CLOFAZIMINE
     Dosage: 300 MG, 1X/MONTH
     Route: 065
  3. RIFAMPIN [Concomitant]
     Active Substance: RIFAMPIN
     Dosage: 600 MG, 1X/MONTH
     Route: 065

REACTIONS (4)
  - Drug-induced liver injury [Recovered/Resolved]
  - Drug reaction with eosinophilia and systemic symptoms [Recovered/Resolved]
  - Pleural effusion [Recovered/Resolved]
  - Ascites [Recovered/Resolved]
